FAERS Safety Report 10160491 (Version 1)
Quarter: 2014Q2

REPORT INFORMATION
  Report Type: Spontaneous
  Country: US (occurrence: US)
  Receive Date: 20140508
  Receipt Date: 20140508
  Transmission Date: 20141212
  Serious: Yes (Hospitalization)
  Sender: FDA-Public Use
  Company Number: US-ASTRAZENECA-2014SE29684

PATIENT
  Age: 27 Year
  Sex: Male
  Weight: 95.3 kg

DRUGS (6)
  1. SEROQUEL XR [Suspect]
     Indication: SCHIZOPHRENIA
     Route: 048
  2. SEROQUEL XR [Suspect]
     Indication: SCHIZOPHRENIA
     Dosage: QUETIAPINE, 50MG IN AM AND 25MG IN THE AFTERNOON
     Route: 048
     Dates: start: 20140421
  3. QUETIAPINE [Suspect]
     Indication: SCHIZOPHRENIA
     Dosage: 50MG IN AM AND 25MG IN THE AFTERNOON
     Route: 048
     Dates: start: 20140421
  4. FISH OIL [Concomitant]
  5. CO-Q-10 [Concomitant]
  6. VIT D [Concomitant]

REACTIONS (7)
  - Agitation [Not Recovered/Not Resolved]
  - Hypertension [Not Recovered/Not Resolved]
  - Heart rate increased [Not Recovered/Not Resolved]
  - Palpitations [Not Recovered/Not Resolved]
  - Blood cholesterol increased [Recovering/Resolving]
  - Blood triglycerides increased [Not Recovered/Not Resolved]
  - Weight increased [Recovering/Resolving]
